FAERS Safety Report 8883418 (Version 1)
Quarter: 2012Q4

REPORT INFORMATION
  Report Type: 
  Country: US (occurrence: US)
  Receive Date: 20121102
  Receipt Date: 20121102
  Transmission Date: 20130627
  Serious: Yes (Other)
  Sender: FDA-Public Use
  Company Number: US-OPTIMER-20120148

PATIENT
  Age: 50 Year
  Sex: Female

DRUGS (5)
  1. DIFICID [Suspect]
     Indication: CLOSTRIDIUM DIFFICILE COLITIS
     Dosage: 200 mg, bid
     Route: 048
     Dates: start: 20120828, end: 20120829
  2. DIOVAN [Concomitant]
     Indication: HYPERTENSION
     Dosage: 160 mg, qd
     Route: 048
  3. METOPROLOL SUCCINATE [Concomitant]
     Indication: HYPERTENSION
     Dosage: ^25^, qd
     Route: 048
  4. HUMULIN R [Concomitant]
     Indication: DIABETES MELLITUS
     Dosage: UNK, variable
     Route: 058
  5. HUMULIN N [Concomitant]
     Indication: DIABETES MELLITUS
     Dosage: 60 units AM, 30 units PM, bid
     Route: 058

REACTIONS (3)
  - Pharyngeal oedema [Recovered/Resolved]
  - Dyspnoea [Recovered/Resolved]
  - Chest discomfort [Recovered/Resolved]
